FAERS Safety Report 22098869 (Version 1)
Quarter: 2023Q1

REPORT INFORMATION
  Report Type: 
  Country: US (occurrence: US)
  Receive Date: 20230315
  Receipt Date: 20230315
  Transmission Date: 20230418
  Serious: Yes (Other)
  Sender: FDA-Public Use
  Company Number: US-C B Fleet Co Inc-202303-US-000704

PATIENT
  Sex: Female

DRUGS (1)
  1. DEBROX [Suspect]
     Active Substance: CARBAMIDE PEROXIDE
     Indication: Product used for unknown indication
     Dosage: UNKNOWN DOSE
     Route: 001

REACTIONS (3)
  - Facial paralysis [Not Recovered/Not Resolved]
  - Ear pain [Unknown]
  - Hypoacusis [Not Recovered/Not Resolved]
